FAERS Safety Report 7594796-8 (Version None)
Quarter: 2011Q2

REPORT INFORMATION
  Report Type: 
  Country: None (occurrence: None)
  Receive Date: 20110615
  Receipt Date: 20110510
  Transmission Date: 20111010
  Serious: Yes (Other)
  Sender: FDA-Public Use
  Company Number: DSA_45570_2011

PATIENT
  Sex: Female

DRUGS (10)
  1. BACLOFEN [Concomitant]
  2. FLEXERIL [Concomitant]
  3. CYMBALTA [Concomitant]
  4. MULTIPLE VITAMINS [Concomitant]
  5. XENAZINE [Suspect]
     Indication: DYSTONIA
     Dosage: (12.5 MG BID ORAL), (12.5 MG QD ORAL), (12.5 G BID ORAL)
     Route: 048
     Dates: start: 20110510, end: 20110501
  6. XENAZINE [Suspect]
     Indication: DYSTONIA
     Dosage: (12.5 MG BID ORAL), (12.5 MG QD ORAL), (12.5 G BID ORAL)
     Route: 048
     Dates: start: 20110501
  7. XENAZINE [Suspect]
     Indication: DYSTONIA
     Dosage: (12.5 MG BID ORAL), (12.5 MG QD ORAL), (12.5 G BID ORAL)
     Route: 048
     Dates: start: 20110401, end: 20110509
  8. TRIHEXYPHEN [Concomitant]
  9. ACETAMINOPHEN AND HYDROCODONE BITARTRATE [Concomitant]
  10. XANAX [Concomitant]

REACTIONS (2)
  - DEPRESSION [None]
  - SUICIDAL IDEATION [None]
